FAERS Safety Report 8281070-X (Version None)
Quarter: 2012Q2

REPORT INFORMATION
  Report Type: 
  Country: None (occurrence: None)
  Receive Date: 20120412
  Receipt Date: 20120330
  Transmission Date: 20120825
  Serious: Yes (Other)
  Sender: FDA-Public Use
  Company Number: TR-MYLANLABS-2012S1007083

PATIENT
  Age: 15 Year
  Sex: Male

DRUGS (10)
  1. LEVETIRACETAM [Concomitant]
     Indication: STATUS EPILEPTICUS
     Route: 065
  2. CIPROFLOXACIN [Concomitant]
     Indication: PNEUMONIA
     Route: 065
  3. HALOPERIDOL [Concomitant]
     Indication: STATUS EPILEPTICUS
     Route: 065
  4. ACYCLOVIR [Suspect]
     Indication: ENCEPHALITIS HERPES
     Dosage: 30 MG/KG/DAY
     Route: 041
  5. MEROPENEM [Concomitant]
     Indication: PNEUMONIA
     Route: 065
  6. VANCOMYCIN [Concomitant]
     Indication: PNEUMONIA
     Route: 065
  7. CLONAZEPAM [Concomitant]
     Indication: STATUS EPILEPTICUS
     Route: 065
  8. VORICONAZOLE [Concomitant]
     Indication: PNEUMONIA
     Route: 065
  9. PHENOBARBITAL TAB [Concomitant]
     Indication: STATUS EPILEPTICUS
     Route: 065
  10. ACYCLOVIR [Suspect]
     Route: 041

REACTIONS (1)
  - DERMATITIS BULLOUS [None]
